FAERS Safety Report 5972052-9 (Version None)
Quarter: 2008Q4

REPORT INFORMATION
  Report Type: 
  Country: None (occurrence: None)
  Receive Date: 20081201
  Receipt Date: 20080501
  Transmission Date: 20090506
  Serious: No
  Sender: FDA-Public Use
  Company Number: US-TEVA-168471USA

PATIENT
  Sex: Female
  Weight: 64.014 kg

DRUGS (2)
  1. SALBUTAMOL SULFATE INHALATION, 0.09 MG [Suspect]
     Route: 055
     Dates: start: 20080218, end: 20080223
  2. IBUPROFEN TABLETS [Concomitant]

REACTIONS (2)
  - HEART RATE ABNORMAL [None]
  - VENTRICULAR EXTRASYSTOLES [None]
